FAERS Safety Report 7267047-1 (Version None)
Quarter: 2011Q1

REPORT INFORMATION
  Report Type: 
  Country: None (occurrence: None)
  Receive Date: 20110201
  Receipt Date: 20110118
  Transmission Date: 20110831
  Serious: Yes (Hospitalization, Other)
  Sender: FDA-Public Use
  Company Number: PHHY2011AU04319

PATIENT
  Age: 26 Year
  Sex: Male

DRUGS (15)
  1. CIPROFLOXACIN [Concomitant]
  2. CASPOFUNGIN [Concomitant]
  3. CYCLOSPORINE [Suspect]
     Indication: LUNG TRANSPLANT
  4. SIMULECT [Suspect]
     Indication: LUNG TRANSPLANT
  5. MYCOPHENOLATE MOFETIL [Concomitant]
     Indication: IMMUNOSUPPRESSION
     Dosage: 1.5 MG, BID
  6. AMPHOTERICIN B [Concomitant]
     Dosage: 10 MG, BID
     Route: 045
  7. VALGANCICLOVIR HCL [Concomitant]
     Dosage: 450MG/DAY
  8. SULFAMETHOXAZOLE AND TRIMETHOPRIM [Concomitant]
  9. FLUCONAZOLE [Concomitant]
  10. MEROPENEM [Concomitant]
  11. TACROLIMUS [Concomitant]
  12. HYPERBARIC OXYGEN [Concomitant]
  13. VORICONAZOLE [Concomitant]
  14. POSACONAZOLE [Concomitant]
  15. DEXAMETHASONE [Concomitant]
     Indication: IMMUNOSUPPRESSION
     Dosage: 1.5 MG, DAILY

REACTIONS (24)
  - MUSCULOSKELETAL PAIN [None]
  - JOINT SWELLING [None]
  - OSTEOMYELITIS [None]
  - RENAL IMPAIRMENT [None]
  - CANDIDIASIS [None]
  - ANGIOPATHY [None]
  - LIVER FUNCTION TEST ABNORMAL [None]
  - ASPERGILLOSIS [None]
  - PLEURAL EFFUSION [None]
  - HYPOGLYCAEMIA [None]
  - COMPUTERISED TOMOGRAM ABNORMAL [None]
  - NEUROTOXICITY [None]
  - LOWER RESPIRATORY TRACT INFECTION [None]
  - STATUS EPILEPTICUS [None]
  - BLOOD PRESSURE ABNORMAL [None]
  - PYREXIA [None]
  - POSTERIOR REVERSIBLE ENCEPHALOPATHY SYNDROME [None]
  - PSEUDOMONAS INFECTION [None]
  - CONVULSION [None]
  - JOINT EFFUSION [None]
  - PLEURAL HAEMORRHAGE [None]
  - ORGANISING PNEUMONIA [None]
  - ARTHRITIS BACTERIAL [None]
  - MOVEMENT DISORDER [None]
